FAERS Safety Report 6321522-2 (Version None)
Quarter: 2009Q3

REPORT INFORMATION
  Report Type: 
  Country: None (occurrence: None)
  Receive Date: 20090824
  Receipt Date: 20071204
  Transmission Date: 20100115
  Serious: Yes (Other)
  Sender: FDA-Public Use
  Company Number: US-ASTRAZENECA-2006UW21102

PATIENT
  Age: 49 Year
  Sex: Female
  Weight: 68 kg

DRUGS (16)
  1. SEROQUEL [Suspect]
     Indication: DEPRESSION
     Route: 048
  2. SEROQUEL [Suspect]
     Indication: HALLUCINATION, AUDITORY
     Route: 048
  3. EFFEXOR XR [Concomitant]
  4. EFFEXOR XR [Concomitant]
     Dosage: 150-300 MG
  5. LOTREL [Concomitant]
     Dosage: 5/20 ONE TABLET EVERY 12 HOURS
  6. LIPITOR [Concomitant]
  7. DOCUSATE [Concomitant]
  8. ASPIRIN [Concomitant]
  9. PEPCID [Concomitant]
  10. NOVOLOG [Concomitant]
     Dosage: 70/30, 40 UNITS IN AM AND REGULAR 60 UNITS IN PM; 70/30, 30 UNITS, ALONG WITH SLIDING SCALE INSULIN
     Route: 058
  11. ATIVAN [Concomitant]
     Route: 048
  12. DETROL LA [Concomitant]
     Route: 048
  13. ZESTRIL [Concomitant]
  14. NORVASC [Concomitant]
  15. ACTOS [Concomitant]
  16. GLUCOPHAGE [Concomitant]
     Route: 048
     Dates: start: 20040708

REACTIONS (8)
  - DIABETES MELLITUS INADEQUATE CONTROL [None]
  - DIABETIC KETOACIDOSIS [None]
  - DIABETIC NEPHROPATHY [None]
  - DIABETIC NEUROPATHY [None]
  - DIABETIC VASCULAR DISORDER [None]
  - HYPERGLYCAEMIA [None]
  - TYPE 1 DIABETES MELLITUS [None]
  - TYPE 2 DIABETES MELLITUS [None]
